FAERS Safety Report 4442472-2 (Version None)
Quarter: 2004Q3

REPORT INFORMATION
  Report Type: 
  Country: None (occurrence: None)
  Receive Date: 20040903
  Receipt Date: 20040707
  Transmission Date: 20050211
  Serious: Yes (Other)
  Sender: FDA-Public Use
  Company Number: 2004UW14038

PATIENT
  Age: 53 Year
  Sex: Male
  Weight: 70.3075 kg

DRUGS (5)
  1. CRESTOR [Suspect]
     Indication: BLOOD CHOLESTEROL INCREASED
     Dosage: 10 MG PO
     Route: 048
  2. TOPROL-XL [Concomitant]
  3. VERAPAMIL [Concomitant]
  4. DEPO-TESTOSTERONE [Concomitant]
  5. ANDROGEL [Concomitant]

REACTIONS (3)
  - BLOOD TESTOSTERONE INCREASED [None]
  - LIBIDO DECREASED [None]
  - MYALGIA [None]
